FAERS Safety Report 21807147 (Version 1)
Quarter: 2023Q1

REPORT INFORMATION
  Report Type: Spontaneous
  Country: US (occurrence: None)
  Receive Date: 20230102
  Receipt Date: 20230102
  Transmission Date: 20230418
  Serious: No
  Sender: FDA-Public Use
  Company Number: 2022A418775

PATIENT
  Age: 942 Month
  Sex: Male

DRUGS (1)
  1. CALQUENCE [Suspect]
     Active Substance: ACALABRUTINIB
     Indication: Non-Hodgkin^s lymphoma
     Route: 048

REACTIONS (3)
  - Pollakiuria [Unknown]
  - Oral herpes [Unknown]
  - Stomatitis [Unknown]

NARRATIVE: CASE EVENT DATE: 20221201
